FAERS Safety Report 24386040 (Version 2)
Quarter: 2024Q4

REPORT INFORMATION
  Report Type: Report from Study
  Country: US (occurrence: US)
  Receive Date: 20241001
  Receipt Date: 20241002
  Transmission Date: 20250115
  Serious: Yes (Hospitalization, Congenital Anomaly, Other)
  Sender: JAZZ
  Company Number: US-GW00317-2024-GWEP19022 - CANNABIDIOL IN LGS AND DS000011

PATIENT
  Age: 9 Year
  Sex: Female

DRUGS (30)
  1. EPIDIOLEX [Suspect]
     Active Substance: CANNABIDIOL
     Indication: Product used for unknown indication
     Dosage: UNK
     Route: 048
     Dates: start: 20220422
  2. EPIDIOLEX [Suspect]
     Active Substance: CANNABIDIOL
     Dosage: 21 MILLIGRAM/KILOGRAM, QD
     Route: 048
     Dates: start: 20240208
  3. ALBUTEROL [Concomitant]
     Active Substance: ALBUTEROL
     Indication: Chronic respiratory disease
     Dosage: 90 DOSAGE FORM, AS NEEDED (RESPIRATORY)
     Dates: start: 20161215
  4. CLONIDINE [Concomitant]
     Active Substance: CLONIDINE
     Indication: Hypertension
     Dosage: 0.15 MILLIGRAM, TID
     Dates: start: 20201105
  5. BUDESONIDE [Concomitant]
     Active Substance: BUDESONIDE
     Indication: Pneumonia aspiration
     Dosage: 4.5 DOSAGE FORM, BID
     Dates: start: 20201215
  6. TRILEPTAL [Concomitant]
     Active Substance: OXCARBAZEPINE
     Indication: Lennox-Gastaut syndrome
     Dosage: 150 MILLIGRAM
     Dates: start: 20210915
  7. SINGULAIR [Concomitant]
     Active Substance: MONTELUKAST SODIUM
     Indication: Asthma
     Dosage: 5 MILLIGRAM, QD
     Dates: start: 20211018
  8. ZYRTEC [Concomitant]
     Active Substance: CETIRIZINE HYDROCHLORIDE
     Indication: Hypersensitivity
     Dosage: 5 MILLIGRAM, QD
     Dates: start: 20211018
  9. KEPPRA [Concomitant]
     Active Substance: LEVETIRACETAM
     Indication: Lennox-Gastaut syndrome
     Dosage: 1000 MILLIGRAM, BID
     Dates: start: 20211227
  10. PEPCID [Concomitant]
     Active Substance: FAMOTIDINE
     Indication: Dyspepsia
     Dosage: 20 MILLIGRAM, QD
     Dates: start: 20211227
  11. ATROVENT [Concomitant]
     Active Substance: IPRATROPIUM BROMIDE
     Indication: Chronic respiratory disease
     Dosage: 17 DOSAGE FORM, BID
     Dates: start: 20220303
  12. ROBINUL [Concomitant]
     Active Substance: GLYCOPYRROLATE
     Indication: Dyspepsia
     Dosage: 1 MILLIGRAM, TID
     Dates: start: 20220825
  13. ATROPINE [Concomitant]
     Active Substance: ATROPINE
     Indication: Pneumonia aspiration
     Dosage: 1 PERCENT, TID (SUBLINGUAL USE)
     Dates: start: 20221015
  14. COCONUT OIL [Concomitant]
     Active Substance: COCONUT OIL
     Indication: Substance abuse
     Dosage: 5 MILLILITER, TID
     Dates: start: 20221115
  15. TUMS [Concomitant]
     Active Substance: CALCIUM CARBONATE
     Indication: Dyspepsia
     Dosage: 500 MILLIGRAM, QD
     Dates: start: 20221116
  16. ALDACTONE [Concomitant]
     Active Substance: SPIRONOLACTONE
     Indication: Hypertension
     Dosage: 25 MILLIGRAM, BID
     Dates: start: 20230208
  17. DOCUSATE [Concomitant]
     Active Substance: DOCUSATE
     Indication: Constipation
     Dosage: 5 MILLILITER AS NEEDED
     Dates: start: 20230208
  18. MIRALAX [Concomitant]
     Active Substance: POLYETHYLENE GLYCOL 3350
     Indication: Constipation
     Dosage: 8.5 GRAM, QD
     Dates: start: 20230208
  19. POTASSIUM CHLORIDE [Concomitant]
     Active Substance: POTASSIUM CHLORIDE
     Indication: Hypokalaemia
     Dosage: 3.8 MILLILITER, TID
     Dates: start: 20230208
  20. RUFINAMIDE [Concomitant]
     Active Substance: RUFINAMIDE
     Indication: Lennox-Gastaut syndrome
     Dosage: 600 MILLIGRAM, BID
     Dates: start: 20230208
  21. SENOKOT [Concomitant]
     Active Substance: SENNOSIDES
     Indication: Constipation
     Dosage: 8.6 MILLIGRAM, QD
     Dates: start: 20230215
  22. KETOCONAZOLE [Concomitant]
     Active Substance: KETOCONAZOLE
     Indication: Dandruff
     Dosage: 2 PERCENT, AS NEEDED (DANDRUFF)
     Dates: start: 20230405
  23. TOBI [Concomitant]
     Active Substance: TOBRAMYCIN
     Indication: Chronic respiratory disease
     Dosage: 5 MILLILITER
     Dates: start: 20230909
  24. FLUOCINOLONE [Concomitant]
     Active Substance: FLUOCINOLONE
     Indication: Pruritus
     Dosage: 2 DOSAGE FORM, AS NEEDED (TOPICAL)
     Dates: start: 20230612
  25. LEVOTHYROXINE [Concomitant]
     Active Substance: LEVOTHYROXINE
     Indication: Dyspepsia
     Dosage: 50 DOSAGE FORM, QD
     Dates: start: 20231107
  26. KENALOG [Concomitant]
     Active Substance: TRIAMCINOLONE ACETONIDE
     Indication: Rash
     Dosage: 1 DOSAGE FORM, AS NEEDED (TOPICAL)
     Dates: start: 20231215
  27. LASIX [Concomitant]
     Active Substance: FUROSEMIDE
     Indication: Swelling
     Dosage: 10 MILLIGRAM, QD
     Dates: start: 20240112
  28. SODIUM BICARBONATE [Concomitant]
     Active Substance: SODIUM BICARBONATE
     Indication: Dyspepsia
     Dosage: 10 MILLILITER, TID
     Dates: start: 20240315
  29. CHLORHEXIDINE [Concomitant]
     Active Substance: CHLORHEXIDINE
     Indication: Seizure
     Dosage: 15 MILLILITER, BID
     Route: 062
     Dates: start: 20240321
  30. CLOBAZAM [Concomitant]
     Active Substance: CLOBAZAM
     Indication: Lennox-Gastaut syndrome
     Dosage: 20 MILLIGRAM, QD
     Dates: start: 20240321

REACTIONS (1)
  - Seizure [Recovered/Resolved]

NARRATIVE: CASE EVENT DATE: 20240924
